FAERS Safety Report 25964279 (Version 1)
Quarter: 2025Q4

REPORT INFORMATION
  Report Type: Report from Study
  Country: CA (occurrence: CA)
  Receive Date: 20251027
  Receipt Date: 20251027
  Transmission Date: 20260117
  Serious: Yes (Death)
  Sender: LUNDBECK
  Company Number: CA-LUNDBECK-DKLU4021012

PATIENT
  Age: 64 Year
  Sex: Male

DRUGS (1)
  1. VYEPTI [Suspect]
     Active Substance: EPTINEZUMAB-JJMR
     Indication: Migraine
     Dosage: 100 MILLIGRAM
     Route: 041
     Dates: start: 20241128

REACTIONS (1)
  - Death [Fatal]
